FAERS Safety Report 6659633-4 (Version None)
Quarter: 2010Q1

REPORT INFORMATION
  Report Type: 
  Country: None (occurrence: None)
  Receive Date: 20100330
  Receipt Date: 20100318
  Transmission Date: 20100710
  Serious: Yes (Other)
  Sender: FDA-Public Use
  Company Number: US-PFIZER INC-2010035713

PATIENT

DRUGS (1)
  1. GEODON [Suspect]

REACTIONS (4)
  - ATRIAL FLUTTER [None]
  - DIARRHOEA [None]
  - ELECTROLYTE IMBALANCE [None]
  - VOMITING [None]
